FAERS Safety Report 5533664-X (Version None)
Quarter: 2007Q4

REPORT INFORMATION
  Report Type: 
  Country: None (occurrence: None)
  Receive Date: 20071120
  Receipt Date: 20070913
  Transmission Date: 20080405
  Serious: No
  Sender: FDA-Public Use
  Company Number: WAES 0709USA02066

PATIENT
  Age: 81 Year
  Sex: Male

DRUGS (8)
  1. JANUVIA [Suspect]
     Indication: BLOOD GLUCOSE
     Dosage: DAILY/PO
     Route: 048
     Dates: start: 20070828, end: 20070908
  2. BENICAR HCT [Concomitant]
  3. CELEBREX [Concomitant]
  4. LASIX [Concomitant]
  5. LOTREL [Concomitant]
  6. PLETAL [Concomitant]
  7. ATENOLOL [Concomitant]
  8. FLUOXETINE [Concomitant]

REACTIONS (2)
  - RASH GENERALISED [None]
  - WRONG TECHNIQUE IN DRUG USAGE PROCESS [None]
